FAERS Safety Report 19219838 (Version 1)
Quarter: 2021Q2

REPORT INFORMATION
  Report Type: Spontaneous
  Country: GB (occurrence: GB)
  Receive Date: 20210505
  Receipt Date: 20210505
  Transmission Date: 20210717
  Serious: Yes (Life-Threatening, Other)
  Sender: FDA-Public Use
  Company Number: GB-LUPIN PHARMACEUTICALS INC.-2021-05736

PATIENT
  Age: 32 Year
  Sex: Female
  Weight: 90 kg

DRUGS (1)
  1. SERTRALINE [Suspect]
     Active Substance: SERTRALINE HYDROCHLORIDE
     Indication: DEPRESSION
     Dosage: 60 MILLIGRAM
     Route: 048
     Dates: start: 20210201, end: 20210209

REACTIONS (6)
  - Hand-eye coordination impaired [Recovered/Resolved]
  - Depression [Recovered/Resolved]
  - Intentional self-injury [Recovered/Resolved]
  - Emotional distress [Recovered/Resolved]
  - Suicidal ideation [Recovered/Resolved]
  - Cerebral disorder [Recovered/Resolved]

NARRATIVE: CASE EVENT DATE: 202102
